FAERS Safety Report 7943150-5 (Version None)
Quarter: 2011Q4

REPORT INFORMATION
  Report Type: 
  Country: None (occurrence: None)
  Receive Date: 20111128
  Receipt Date: 20111116
  Transmission Date: 20120403
  Serious: Yes (Hospitalization, Other)
  Sender: FDA-Public Use
  Company Number: PHHY2011JP91921

PATIENT
  Sex: Male
  Weight: 67 kg

DRUGS (9)
  1. ALISKIREN [Suspect]
     Indication: HYPERTENSION
     Dosage: 300 MG, DAILY
     Route: 048
     Dates: start: 20100930, end: 20110312
  2. TRICHLORMETHIAZIDE [Suspect]
     Indication: HYPERTENSION
     Dosage: 1 MG, DAILY
     Dates: start: 20100107
  3. ALPRAZOLAM [Concomitant]
     Dosage: 0.4 MG, UNK
     Route: 048
     Dates: start: 20100107
  4. DORNER [Concomitant]
     Dosage: 120 UG, UNK
     Route: 048
     Dates: start: 20100107
  5. DIOVAN [Concomitant]
     Indication: HYPERTENSION
     Dates: start: 20100107, end: 20100929
  6. TICLOPIDINE HYDROCHLORIDE [Concomitant]
     Dosage: 200 MG, UNK
     Route: 048
     Dates: start: 20100107
  7. SPIRONOLACTONE [Concomitant]
     Indication: HYPERTENSION
     Dosage: 25 MG, UNK
     Dates: start: 20100107
  8. AMLODIPINE [Concomitant]
     Indication: HYPERTENSION
     Dosage: 10 MG, UNK
     Dates: start: 20100107
  9. CARVEDILOL [Concomitant]
     Indication: HYPERTENSION
     Dosage: 5 MG, UNK
     Route: 048
     Dates: start: 20100107

REACTIONS (3)
  - CEREBRAL INFARCTION [None]
  - PARALYSIS [None]
  - BLOOD PRESSURE SYSTOLIC INCREASED [None]
